FAERS Safety Report 8770130 (Version 1)
Quarter: 2012Q4

REPORT INFORMATION
  Report Type: 
  Country: BR (occurrence: BR)
  Receive Date: 20120904
  Receipt Date: 20120904
  Transmission Date: 20130627
  Serious: Yes (Hospitalization)
  Sender: FDA-Public Use
  Company Number: BR-AMGEN-BRASP2012054963

PATIENT
  Age: 62 Year
  Sex: Female
  Weight: 44 kg

DRUGS (6)
  1. ENBREL [Suspect]
     Indication: RHEUMATOID ARTHRITIS
     Dosage: 25 mg, 2x/week
     Route: 058
     Dates: start: 201004
  2. RISEDRONATE SODIUM [Concomitant]
     Indication: BONE LOSS
     Dosage: UNK
  3. LOTAR                              /02225901/ [Concomitant]
     Indication: HYPERTENSION
     Dosage: UNK
  4. CARVEDILOL [Concomitant]
     Indication: HYPERTENSION
     Dosage: UNK
  5. METFORMIN [Concomitant]
     Indication: DIABETES MELLITUS
     Dosage: UNK
  6. AZUKON [Concomitant]
     Indication: DIABETES MELLITUS
     Dosage: UNK

REACTIONS (2)
  - Hepatomegaly [Unknown]
  - Cardiomegaly [Unknown]
